FAERS Safety Report 17374363 (Version 14)
Quarter: 2022Q2

REPORT INFORMATION
  Report Type: Spontaneous
  Country: US (occurrence: US)
  Receive Date: 20200205
  Receipt Date: 20220513
  Transmission Date: 20220720
  Serious: Yes (Other)
  Sender: FDA-Public Use
  Company Number: US-PFIZER INC-2020049975

PATIENT
  Age: 66 Year
  Sex: Female
  Weight: 63.5 kg

DRUGS (7)
  1. XANAX [Suspect]
     Active Substance: ALPRAZOLAM
     Indication: Essential tremor
     Dosage: UNK (ONE HALF TO ONE TABLET THREE TIMES DAILY)
     Route: 048
     Dates: start: 2015
  2. XANAX [Suspect]
     Active Substance: ALPRAZOLAM
     Indication: Anxiety
     Dosage: 0.5 MG (3-4 YEARS)
  3. XANAX [Suspect]
     Active Substance: ALPRAZOLAM
     Indication: Panic disorder
     Dosage: 1 MG
     Dates: start: 20200801, end: 20200807
  4. XANAX [Suspect]
     Active Substance: ALPRAZOLAM
     Dosage: 1 MG, 3X/DAY
  5. XANAX [Suspect]
     Active Substance: ALPRAZOLAM
     Dosage: UNK (TAKE HALF OR WHOLE IN MORNING AND HALF OR WHOLE NIGHT AND 1 AT MIDNIGHT)
     Route: 048
  6. VITAMIN B COMPLEX [Concomitant]
     Active Substance: CYANOCOBALAMIN\DEXPANTHENOL\NIACINAMIDE\PYRIDOXINE HYDROCHLORIDE\RIBOFLAVIN 5^-PHOSPHATE SODIUM\THIA
     Dosage: UNK
  7. CHOLECALCIFEROL [Concomitant]
     Active Substance: CHOLECALCIFEROL
     Dosage: UNK

REACTIONS (24)
  - Seizure [Unknown]
  - Cholecystectomy [Unknown]
  - Drug ineffective [Unknown]
  - Poor quality product administered [Unknown]
  - Intentional product use issue [Unknown]
  - Diarrhoea [Unknown]
  - Recalled product administered [Unknown]
  - Nausea [Not Recovered/Not Resolved]
  - Feeling abnormal [Unknown]
  - Intentional product misuse [Unknown]
  - Product dispensing error [Unknown]
  - Rash [Not Recovered/Not Resolved]
  - Therapeutic response unexpected [Unknown]
  - Chest discomfort [Not Recovered/Not Resolved]
  - Throat tightness [Not Recovered/Not Resolved]
  - Nervousness [Unknown]
  - Drug eruption [Not Recovered/Not Resolved]
  - Eczema [Not Recovered/Not Resolved]
  - Migraine [Unknown]
  - Illness [Unknown]
  - Dyspnoea [Unknown]
  - Chest pain [Unknown]
  - Tremor [Unknown]
  - Dyskinesia [Unknown]

NARRATIVE: CASE EVENT DATE: 20150101
